FAERS Safety Report 8707805 (Version 4)
Quarter: 2014Q3

REPORT INFORMATION
  Report Type: Spontaneous
  Country: US (occurrence: US)
  Receive Date: 20120806
  Receipt Date: 20140828
  Transmission Date: 20150326
  Serious: Yes (Hospitalization, Other)
  Sender: FDA-Public Use
  Company Number: US-009507513-2009SP016965

PATIENT
  Sex: Female
  Weight: 54.43 kg

DRUGS (4)
  1. NUVARING [Suspect]
     Active Substance: ETHINYL ESTRADIOL\ETONOGESTREL
     Indication: CONTRACEPTION
     Dosage: 1 DF, QM
     Route: 067
     Dates: start: 20050729, end: 20051230
  2. CEPHALEXIN. [Concomitant]
     Active Substance: CEPHALEXIN
     Indication: INFECTION PROPHYLAXIS
     Dosage: FOR 30 DAYS
     Dates: start: 20051110
  3. TYLENOL [Concomitant]
     Active Substance: ACETAMINOPHEN
     Indication: HEADACHE
     Dates: start: 200511, end: 200512
  4. IMITREX [Concomitant]
     Active Substance: SUMATRIPTAN\SUMATRIPTAN SUCCINATE
     Dates: start: 200512

REACTIONS (12)
  - Migraine [Unknown]
  - Encephalomalacia [Unknown]
  - Phlebitis [Unknown]
  - Embolic stroke [Recovered/Resolved]
  - Weight decreased [Unknown]
  - Device failure [Recovered/Resolved]
  - Atrial septal defect [Unknown]
  - Influenza [Unknown]
  - Intervertebral disc disorder [Unknown]
  - Adenoma benign [Unknown]
  - Varicose vein [Unknown]
  - Cardiac aneurysm [Unknown]

NARRATIVE: CASE EVENT DATE: 200508
